FAERS Safety Report 6377916-2 (Version None)
Quarter: 2009Q3

REPORT INFORMATION
  Report Type: 
  Country: None (occurrence: None)
  Receive Date: 20090925
  Receipt Date: 20090915
  Transmission Date: 20100115
  Serious: Yes (Hospitalization, Other)
  Sender: FDA-Public Use
  Company Number: PHHY2009CO00954

PATIENT
  Sex: Female

DRUGS (5)
  1. ACLASTA [Suspect]
     Indication: OSTEOPOROSIS
     Dosage: 1 INFUSION (5 MG/100 ML) ANNUAL
     Route: 042
     Dates: start: 20080110
  2. ATIVAN [Concomitant]
     Indication: SEDATIVE THERAPY
  3. PLAVIX [Concomitant]
  4. ANTIHYPERTENSIVE DRUGS [Concomitant]
  5. CALCIUM [Concomitant]

REACTIONS (4)
  - FALL [None]
  - GAIT DISTURBANCE [None]
  - HIP FRACTURE [None]
  - HIP SURGERY [None]
